FAERS Safety Report 8806614 (Version 1)
Quarter: 2012Q4

REPORT INFORMATION
  Report Type: Report from Study
  Country: DE (occurrence: DE)
  Receive Date: 20120925
  Receipt Date: 20120925
  Transmission Date: 20130627
  Serious: Yes (Hospitalization)
  Sender: FDA-Public Use
  Company Number: DE-ABBOTT-12P-062-0983991-00

PATIENT
  Age: 13 Year
  Sex: Female
  Weight: 38 kg

DRUGS (4)
  1. HUMIRA [Suspect]
     Route: 058
     Dates: start: 201108, end: 201204
  2. HUMIRA [Suspect]
     Route: 058
     Dates: start: 201205
  3. AZATHIOPRINE [Concomitant]
     Indication: CROHN^S DISEASE
     Dates: start: 201103
  4. BUDENOSID [Concomitant]
     Indication: PRODUCT USED FOR UNKNOWN INDICATION
     Dates: start: 201103

REACTIONS (2)
  - Crohn^s disease [Recovered/Resolved]
  - Intestinal resection [Recovered/Resolved]
